FAERS Safety Report 21602933 (Version 1)
Quarter: 2022Q4

REPORT INFORMATION
  Report Type: Spontaneous
  Country: CN (occurrence: CN)
  Receive Date: 20221116
  Receipt Date: 20221116
  Transmission Date: 20230113
  Serious: Yes (Life-Threatening, Other)
  Sender: FDA-Public Use
  Company Number: CN-SA-SAC20221115000850

PATIENT
  Age: 23 Year
  Sex: Female
  Weight: 57 kg

DRUGS (2)
  1. ZOLPIDEM TARTRATE [Suspect]
     Active Substance: ZOLPIDEM TARTRATE
     Indication: Intentional overdose
     Dosage: 15 TABLET, 1X
     Route: 048
     Dates: start: 20221008, end: 20221008
  2. MIRTAZAPINE [Suspect]
     Active Substance: MIRTAZAPINE
     Indication: Intentional overdose
     Dosage: 13 TABLET,1X
     Route: 048
     Dates: start: 20221008, end: 20221008

REACTIONS (1)
  - Poisoning [Recovering/Resolving]

NARRATIVE: CASE EVENT DATE: 20221008
